FAERS Safety Report 13541673 (Version 2)
Quarter: 2017Q2

REPORT INFORMATION
  Report Type: Report from Study
  Country: US (occurrence: US)
  Receive Date: 20170512
  Receipt Date: 20170622
  Transmission Date: 20170830
  Serious: No
  Sender: FDA-Public Use
  Company Number: US-009507513-1705USA004695

PATIENT
  Age: 22 Year
  Sex: Female
  Weight: 95.9 kg

DRUGS (1)
  1. IMPLANON [Suspect]
     Active Substance: ETONOGESTREL
     Dosage: UNK
     Route: 059
     Dates: start: 20170411, end: 20170504

REACTIONS (4)
  - Implant site hypersensitivity [Unknown]
  - Implant site infection [Unknown]
  - Implant site pain [Unknown]
  - Implant site erythema [Unknown]

NARRATIVE: CASE EVENT DATE: 2017
